FAERS Safety Report 11878006 (Version 1)
Quarter: 2015Q4

REPORT INFORMATION
  Report Type: Other
  Country: PT (occurrence: PT)
  Receive Date: 20151230
  Receipt Date: 20151230
  Transmission Date: 20160305
  Serious: Yes (Other)
  Sender: FDA-Public Use
  Company Number: PT-LUPIN PHARMACEUTICALS INC.-2015-04368

PATIENT
  Age: 76 Year
  Sex: Female

DRUGS (1)
  1. SERTRALINE [Suspect]
     Active Substance: SERTRALINE HYDROCHLORIDE
     Indication: DEPRESSIVE SYMPTOM
     Route: 065

REACTIONS (2)
  - Ileus paralytic [Recovered/Resolved]
  - Diarrhoea [Recovered/Resolved]
